FAERS Safety Report 7597783-9 (Version None)
Quarter: 2011Q3

REPORT INFORMATION
  Report Type: 
  Country: None (occurrence: None)
  Receive Date: 20110708
  Receipt Date: 20110705
  Transmission Date: 20111222
  Serious: Yes (Hospitalization, Other)
  Sender: FDA-Public Use
  Company Number: US-GILEAD-2011-0041366

PATIENT
  Age: 45 Year

DRUGS (1)
  1. LETAIRIS [Suspect]
     Indication: PRODUCT USED FOR UNKNOWN INDICATION
     Route: 048
     Dates: start: 20110409

REACTIONS (5)
  - DEPRESSION [None]
  - FALL [None]
  - SYNCOPE [None]
  - JOINT INJURY [None]
  - LIMB INJURY [None]
